FAERS Safety Report 17365232 (Version 3)
Quarter: 2024Q2

REPORT INFORMATION
  Report Type: Spontaneous
  Country: CA (occurrence: CA)
  Receive Date: 20200204
  Receipt Date: 20240506
  Transmission Date: 20240715
  Serious: Yes (Hospitalization, Other)
  Sender: FDA-Public Use
  Company Number: CA-AUROBINDO-AUR-APL-2020-005255

PATIENT
  Age: 68 Year
  Sex: Female

DRUGS (14)
  1. METFORMIN [Suspect]
     Active Substance: METFORMIN HYDROCHLORIDE
     Indication: Product used for unknown indication
     Dosage: 750 MILLIGRAM, TWO TIMES A DAY
     Route: 048
  2. SANDOSTATIN [Suspect]
     Active Substance: OCTREOTIDE ACETATE
     Indication: Acromegaly
     Dosage: 20 MILLIGRAM, ONCE A DAY (EVERY MORNING)
     Route: 030
  3. AVAPRO [Concomitant]
     Active Substance: IRBESARTAN
     Indication: Product used for unknown indication
     Dosage: 150 MILLIGRAM, ONCE A DAY
     Route: 065
  4. BRIMONIDINE TARTRATE [Concomitant]
     Active Substance: BRIMONIDINE TARTRATE
     Indication: Product used for unknown indication
     Dosage: UNK
     Route: 065
  5. CORTISONE [Concomitant]
     Active Substance: CORTISONE
     Indication: Product used for unknown indication
     Dosage: UNK
     Route: 065
  6. ESTRADIOL DIPROPIONATE [Concomitant]
     Active Substance: ESTRADIOL DIPROPIONATE
     Indication: Vaginal prolapse
     Dosage: 10 MILLIGRAM, TWO TIMES A DAY
     Route: 065
  7. GABAPENTIN [Concomitant]
     Active Substance: GABAPENTIN
     Indication: Product used for unknown indication
     Dosage: UNK
     Route: 065
  8. LEVOTHYROXINE [Concomitant]
     Active Substance: LEVOTHYROXINE\LEVOTHYROXINE SODIUM
     Indication: Product used for unknown indication
     Dosage: 0.05 MILLIGRAM, EVERY WEEK
     Route: 065
  9. LIPITOR [Concomitant]
     Active Substance: ATORVASTATIN CALCIUM
     Indication: Product used for unknown indication
     Dosage: UNK
     Route: 065
  10. NORFLEX [Concomitant]
     Active Substance: ORPHENADRINE CITRATE
     Indication: Product used for unknown indication
     Dosage: 100 MILLIGRAM, TWO TIMES A DAY
     Route: 065
  11. SERTRALINE [Concomitant]
     Active Substance: SERTRALINE HYDROCHLORIDE
     Indication: Product used for unknown indication
     Dosage: UNK
     Route: 065
  12. SYNTHROID [Concomitant]
     Active Substance: LEVOTHYROXINE SODIUM
     Indication: Product used for unknown indication
     Dosage: UNK
     Route: 065
  13. XALATAN [Concomitant]
     Active Substance: LATANOPROST
     Indication: Product used for unknown indication
     Dosage: UNK
     Route: 065
  14. DORZOLAMIDE\TIMOLOL [Concomitant]
     Active Substance: DORZOLAMIDE\TIMOLOL
     Indication: Product used for unknown indication
     Dosage: UNK

REACTIONS (28)
  - Arthralgia [Recovering/Resolving]
  - Blood urine present [Recovering/Resolving]
  - Blood magnesium decreased [Recovering/Resolving]
  - Dysphonia [Recovering/Resolving]
  - Dysuria [Recovering/Resolving]
  - Fracture pain [Recovering/Resolving]
  - Laryngitis [Recovering/Resolving]
  - Loss of consciousness [Recovering/Resolving]
  - Micturition urgency [Recovering/Resolving]
  - Periarthritis [Recovering/Resolving]
  - Pollakiuria [Recovering/Resolving]
  - Migraine [Recovering/Resolving]
  - Road traffic accident [Recovering/Resolving]
  - Sternal fracture [Recovering/Resolving]
  - Urinary tract infection [Recovering/Resolving]
  - Haemangioma of liver [Recovering/Resolving]
  - Abscess [Recovering/Resolving]
  - Asthenia [Recovering/Resolving]
  - Blood pressure increased [Recovering/Resolving]
  - Blood pressure systolic increased [Recovering/Resolving]
  - Chest pain [Recovering/Resolving]
  - Headache [Recovering/Resolving]
  - Fall [Recovering/Resolving]
  - Patella fracture [Recovering/Resolving]
  - Syncope [Recovering/Resolving]
  - Sleep disorder [Recovering/Resolving]
  - Pain in jaw [Recovering/Resolving]
  - Inappropriate schedule of product administration [Recovering/Resolving]
